FAERS Safety Report 20472355 (Version 2)
Quarter: 2022Q1

REPORT INFORMATION
  Report Type: Report from Study
  Country: BR (occurrence: BR)
  Receive Date: 20220215
  Receipt Date: 20220316
  Transmission Date: 20220423
  Serious: Yes (Other)
  Sender: FDA-Public Use
  Company Number: BR-NOVARTISPH-NVSC2021BR156615

PATIENT
  Age: 76 Year
  Sex: Female

DRUGS (3)
  1. KISQALI [Suspect]
     Active Substance: RIBOCICLIB
     Indication: Breast cancer
     Dosage: UNK (3 TABLETS)
     Route: 065
     Dates: start: 20210611
  2. KISQALI [Suspect]
     Active Substance: RIBOCICLIB
     Dosage: UNK
     Route: 065
     Dates: start: 20210611, end: 202202
  3. KISQALI [Suspect]
     Active Substance: RIBOCICLIB
     Dosage: UNK (2 TABLETS)
     Route: 065

REACTIONS (24)
  - Decreased immune responsiveness [Recovered/Resolved]
  - Skin irritation [Not Recovered/Not Resolved]
  - Skin discolouration [Not Recovered/Not Resolved]
  - Skin lesion [Unknown]
  - Aphthous ulcer [Recovered/Resolved]
  - Alopecia [Not Recovered/Not Resolved]
  - Haemoglobin decreased [Not Recovered/Not Resolved]
  - Platelet count decreased [Unknown]
  - Pruritus [Recovered/Resolved]
  - Rash [Recovering/Resolving]
  - Erythema [Recovered/Resolved]
  - Dry skin [Not Recovered/Not Resolved]
  - Erythema [Not Recovered/Not Resolved]
  - Sensitive skin [Unknown]
  - Pain of skin [Unknown]
  - Skin exfoliation [Unknown]
  - Skin wound [Not Recovered/Not Resolved]
  - Peripheral coldness [Unknown]
  - Dysphonia [Unknown]
  - Discomfort [Unknown]
  - Hepatic lesion [Unknown]
  - Drug ineffective [Unknown]
  - Nausea [Unknown]
  - Rash macular [Recovering/Resolving]

NARRATIVE: CASE EVENT DATE: 20210601
